FAERS Safety Report 9121520 (Version 1)
Quarter: 2013Q1

REPORT INFORMATION
  Report Type: Spontaneous
  Country: IT (occurrence: IT)
  Receive Date: 20130227
  Receipt Date: 20130227
  Transmission Date: 20140127
  Serious: Yes (Congenital Anomaly, Other)
  Sender: FDA-Public Use
  Company Number: IT-PAR PHARMACEUTICAL, INC-2013SCPR005579

PATIENT
  Sex: 0

DRUGS (1)
  1. CLOMIPHENE CITRATE [Suspect]
     Indication: INFERTILITY
     Dosage: UNK UNK, UNKNOWN
     Route: 064

REACTIONS (3)
  - Holoprosencephaly [Unknown]
  - Foetal exposure during pregnancy [None]
  - Cleft lip and palate [Unknown]
